FAERS Safety Report 19913488 (Version 5)
Quarter: 2022Q1

REPORT INFORMATION
  Report Type: Report from Study
  Country: CA (occurrence: CA)
  Receive Date: 20211004
  Receipt Date: 20220318
  Transmission Date: 20220423
  Serious: Yes (Other)
  Sender: FDA-Public Use
  Company Number: CA-SA-2019SA053246

PATIENT
  Age: 42 Year
  Sex: Female

DRUGS (20)
  1. DUPILUMAB [Suspect]
     Active Substance: DUPILUMAB
     Indication: Dermatitis atopic
     Dosage: 600 MG, 1X
     Route: 058
  2. DUPILUMAB [Suspect]
     Active Substance: DUPILUMAB
     Dosage: 300 MG, QOW
     Route: 058
     Dates: start: 20180908
  3. PROTOPIC [Concomitant]
     Active Substance: TACROLIMUS
     Indication: Dermatitis atopic
     Dosage: UNK UNK, PRN
     Route: 061
  4. TACROLIMUS [Concomitant]
     Active Substance: TACROLIMUS
     Dosage: UNK UNK, PRN
  5. CYCLOSPORINE [Concomitant]
     Active Substance: CYCLOSPORINE
  6. OCUNOX [OXYBUPROCAINE HYDROCHLORIDE] [Concomitant]
     Dosage: UNK, HS
  7. PRED MILD [Concomitant]
     Active Substance: PREDNISOLONE ACETATE
     Dosage: 1 DF, PRN
  8. CLOBETASOL [Concomitant]
     Active Substance: CLOBETASOL
  9. CLOBETASOL [Concomitant]
     Active Substance: CLOBETASOL
  10. CLOBETASOL [Concomitant]
     Active Substance: CLOBETASOL
  11. FUSIDIC ACID [Concomitant]
     Active Substance: FUSIDIC ACID
  12. FUSIDIC ACID [Concomitant]
     Active Substance: FUSIDIC ACID
  13. FUSIDIC ACID [Concomitant]
     Active Substance: FUSIDIC ACID
  14. BETADERM [Concomitant]
     Active Substance: BETAMETHASONE VALERATE
  15. OMEGA 100 [Concomitant]
  16. ERYTHROMYCIN [Concomitant]
     Active Substance: ERYTHROMYCIN
  17. DEXAMETHASONE [Concomitant]
     Active Substance: DEXAMETHASONE
  18. DEXAMETHASONE [Concomitant]
     Active Substance: DEXAMETHASONE
  19. FUSIDATE SODIUM [Concomitant]
     Active Substance: FUSIDATE SODIUM
     Route: 047
  20. CYCLOSPORINE [Concomitant]
     Active Substance: CYCLOSPORINE

REACTIONS (14)
  - Abortion spontaneous [Unknown]
  - Ocular hyperaemia [Not Recovered/Not Resolved]
  - Eye discharge [Not Recovered/Not Resolved]
  - Condition aggravated [Not Recovered/Not Resolved]
  - Impaired quality of life [Not Recovered/Not Resolved]
  - Pruritus [Not Recovered/Not Resolved]
  - Eye disorder [Unknown]
  - Eye ulcer [Unknown]
  - Conjunctivitis [Unknown]
  - Drug ineffective [Unknown]
  - Intentional product misuse [Unknown]
  - Product use issue [Unknown]
  - Maternal exposure during pregnancy [Unknown]
  - Therapy cessation [Unknown]

NARRATIVE: CASE EVENT DATE: 20180809
